FAERS Safety Report 8997473 (Version 1)
Quarter: 2013Q1

REPORT INFORMATION
  Report Type: Report from Study
  Country: JP (occurrence: JP)
  Receive Date: 20130104
  Receipt Date: 20130104
  Transmission Date: 20140127
  Serious: Yes (Death)
  Sender: FDA-Public Use
  Company Number: JP-AMGEN-JPNCT2012084381

PATIENT
  Age: 86 Year
  Sex: Male
  Weight: 48 kg

DRUGS (17)
  1. DARBEPOETIN ALFA [Suspect]
     Indication: NEPHROGENIC ANAEMIA
     Dosage: 40 MUG, UNK
     Route: 058
     Dates: start: 20110613, end: 20110613
  2. DARBEPOETIN ALFA [Suspect]
     Dosage: 40 MUG, UNK
     Route: 058
     Dates: start: 20110725, end: 20110725
  3. DARBEPOETIN ALFA [Suspect]
     Dosage: 60 MUG, UNK
     Route: 058
     Dates: start: 20110829, end: 20110829
  4. DARBEPOETIN ALFA [Suspect]
     Dosage: 60 MUG, UNK
     Route: 058
     Dates: start: 20111003, end: 20111003
  5. DARBEPOETIN ALFA [Suspect]
     Dosage: 60 MUG, UNK
     Route: 058
     Dates: start: 20111220, end: 20111220
  6. DARBEPOETIN ALFA [Suspect]
     Dosage: 120 MUG, UNK
     Route: 058
     Dates: start: 20120116, end: 20120116
  7. BAYASPIRIN [Concomitant]
     Dosage: UNK
     Route: 048
  8. MEVALOTIN [Concomitant]
     Dosage: UNK
     Route: 048
  9. GASTER D [Concomitant]
     Dosage: UNK
     Route: 048
  10. ADALAT L [Concomitant]
     Dosage: UNK
     Route: 048
  11. ARTIST [Concomitant]
     Dosage: UNK
     Route: 048
  12. FRANDOL S [Concomitant]
     Dosage: UNK
     Route: 062
  13. ALOSENN [Concomitant]
     Dosage: UNK
     Route: 048
  14. SODIUM BICARBONATE [Concomitant]
     Indication: GLOMERULONEPHRITIS CHRONIC
     Dosage: UNK
     Route: 048
  15. KALIMATE [Concomitant]
     Indication: GLOMERULONEPHRITIS CHRONIC
     Dosage: UNK
     Route: 048
  16. LASIX [Concomitant]
     Indication: GLOMERULONEPHRITIS CHRONIC
     Dosage: UNK
     Route: 048
  17. INFLUENZA VACCIN [Concomitant]
     Dosage: UNK
     Dates: start: 20111212

REACTIONS (1)
  - Death [Fatal]
